FAERS Safety Report 4383226-5 (Version None)
Quarter: 2004Q2

REPORT INFORMATION
  Report Type: 
  Country: None (occurrence: None)
  Receive Date: 20040618
  Receipt Date: 20040609
  Transmission Date: 20050107
  Serious: Yes (Other)
  Sender: FDA-Public Use
  Company Number: 200412864BCC

PATIENT
  Age: 82 Year
  Sex: Male
  Weight: 72.5755 kg

DRUGS (4)
  1. ALEVE [Suspect]
     Indication: PAIN
     Dosage: 220 MG, QD, ORAL
     Route: 048
  2. VASOTEC [Concomitant]
  3. B-12 [Concomitant]
  4. VITAMIN E GEL [Concomitant]

REACTIONS (1)
  - BLOOD PRESSURE INCREASED [None]
